FAERS Safety Report 20155968 (Version 1)
Quarter: 2021Q4

REPORT INFORMATION
  Report Type: Spontaneous
  Country: KR (occurrence: KR)
  Receive Date: 20211207
  Receipt Date: 20211207
  Transmission Date: 20220303
  Serious: Yes (Other)
  Sender: FDA-Public Use
  Company Number: KR-009507513-2111KOR009169

PATIENT
  Age: 68 Year
  Sex: Male
  Weight: 75 kg

DRUGS (16)
  1. PREVYMIS [Suspect]
     Active Substance: LETERMOVIR
     Indication: Antiviral prophylaxis
     Dosage: STRENGTH: 240 MG, ONCE DAILY
     Dates: start: 20200923, end: 20201217
  2. VACRAX [ACICLOVIR] [Concomitant]
     Indication: Antiviral prophylaxis
     Dosage: 2 TABLETS, TWICE A DAY
     Route: 048
     Dates: start: 20200902, end: 20201112
  3. VACRAX [ACICLOVIR] [Concomitant]
     Dosage: 1 TABLET, TWICE A DAY
     Route: 048
     Dates: start: 20201113
  4. CIPOL-N [Concomitant]
     Indication: Prophylaxis against graft versus host disease
     Dosage: 2 CAPSULES, THREE TIMES A DAY
     Route: 048
     Dates: start: 20200922, end: 20200922
  5. CIPOL-N [Concomitant]
     Dosage: 2 CAPSULES, TWICE A DAY
     Route: 048
     Dates: start: 20200923, end: 20200924
  6. CIPOL-N [Concomitant]
     Dosage: 1 CAPSULE, TWICE A DAY
     Route: 048
     Dates: start: 20200925, end: 20200926
  7. CIPOL-N [Concomitant]
     Dosage: 1 CAPSULE, THREE TIMES A DAY
     Route: 048
     Dates: start: 20200927, end: 20200927
  8. CIPOL-N [Concomitant]
     Dosage: 1 CAPSULE, TWICE A DAY
     Route: 048
     Dates: start: 20200928
  9. GRASIN [Concomitant]
     Indication: Myeloproliferative neoplasm
     Dosage: 300 MICROGRAM, ONCE A DAY
     Route: 042
     Dates: start: 20200916
  10. SULFAMETHOXAZOLE\TRIMETHOPRIM [Concomitant]
     Active Substance: SULFAMETHOXAZOLE\TRIMETHOPRIM
     Indication: Infection prophylaxis
     Dosage: 1 TAB, ONCE DAILY
     Route: 048
     Dates: start: 20200922
  11. RUXOLITINIB [Concomitant]
     Active Substance: RUXOLITINIB
     Indication: Myeloproliferative neoplasm
     Dosage: 2 TAB, ONCE DAILY
     Route: 048
     Dates: start: 20201219, end: 20201219
  12. RUXOLITINIB [Concomitant]
     Active Substance: RUXOLITINIB
     Dosage: 1 TAB, ONCE DAILY
     Route: 048
     Dates: start: 20201219, end: 20201219
  13. RUXOLITINIB [Concomitant]
     Active Substance: RUXOLITINIB
     Dosage: 1 TAB, TWICE A DAY
     Route: 048
     Dates: start: 20201220
  14. NOXAFIL [Concomitant]
     Active Substance: POSACONAZOLE
     Indication: Antifungal prophylaxis
     Dosage: 3 TAB, ONCE DAILY
     Route: 048
     Dates: start: 20200928
  15. SAMSCA [Concomitant]
     Active Substance: TOLVAPTAN
     Indication: Hyponatraemia
     Dosage: 1 TAB, ONCE DAILY
     Route: 048
     Dates: start: 20201016
  16. URSODIOL [Concomitant]
     Active Substance: URSODIOL
     Indication: Prophylaxis
     Dosage: 1 TAB, THREE TIMES A DAY
     Dates: start: 20201009

REACTIONS (2)
  - Cytomegalovirus colitis [Unknown]
  - Drug ineffective [Unknown]

NARRATIVE: CASE EVENT DATE: 20210130
